FAERS Safety Report 21361574 (Version 1)
Quarter: 2022Q3

REPORT INFORMATION
  Report Type: Spontaneous
  Country: US (occurrence: US)
  Receive Date: 20220921
  Receipt Date: 20220921
  Transmission Date: 20221027
  Serious: Yes (Hospitalization, Other)
  Sender: FDA-Public Use
  Company Number: US-SEATTLE GENETICS-2022SGN08706

PATIENT
  Sex: Female

DRUGS (2)
  1. TUKYSA [Suspect]
     Active Substance: TUCATINIB
     Indication: Breast cancer metastatic
     Route: 048
  2. CAPECITABINE [Suspect]
     Active Substance: CAPECITABINE
     Indication: Breast cancer metastatic
     Route: 065

REACTIONS (5)
  - Dizziness [Unknown]
  - Syncope [Unknown]
  - Abdominal pain [Unknown]
  - Faecaloma [Unknown]
  - Jejunostomy [Unknown]

NARRATIVE: CASE EVENT DATE: 20220801
